FAERS Safety Report 17684653 (Version 3)
Quarter: 2020Q3

REPORT INFORMATION
  Report Type: Report from Study
  Country: None (occurrence: CA)
  Receive Date: 20200420
  Receipt Date: 20200909
  Transmission Date: 20201102
  Serious: Yes (Life-Threatening, Hospitalization, Other)
  Sender: FDA-Public Use
  Company Number: CA-ABBVIE-20K-028-3365686-00

PATIENT
  Sex: Male

DRUGS (1)
  1. HUMIRA [Suspect]
     Active Substance: ADALIMUMAB
     Indication: HIDRADENITIS
     Route: 058
     Dates: start: 20180810, end: 201911

REACTIONS (22)
  - Diabetic foot [Unknown]
  - Suicidal ideation [Not Recovered/Not Resolved]
  - Personal relationship issue [Unknown]
  - Skin haemorrhage [Not Recovered/Not Resolved]
  - Pain in extremity [Unknown]
  - Colitis [Not Recovered/Not Resolved]
  - Purulent discharge [Unknown]
  - Secretion discharge [Not Recovered/Not Resolved]
  - Exposure to communicable disease [Not Recovered/Not Resolved]
  - Back pain [Not Recovered/Not Resolved]
  - Apparent life threatening event [Unknown]
  - Haemoglobin decreased [Not Recovered/Not Resolved]
  - Skin ulcer [Not Recovered/Not Resolved]
  - Wound haemorrhage [Unknown]
  - Osteomyelitis [Unknown]
  - Asthenia [Not Recovered/Not Resolved]
  - Skin odour abnormal [Not Recovered/Not Resolved]
  - Ulcer haemorrhage [Not Recovered/Not Resolved]
  - Drug ineffective [Not Recovered/Not Resolved]
  - Frustration tolerance decreased [Unknown]
  - Mobility decreased [Unknown]
  - General physical health deterioration [Not Recovered/Not Resolved]

NARRATIVE: CASE EVENT DATE: 2020
